FAERS Safety Report 7276663-2 (Version None)
Quarter: 2011Q1

REPORT INFORMATION
  Report Type: 
  Country: None (occurrence: None)
  Receive Date: 20110204
  Receipt Date: 20110131
  Transmission Date: 20110831
  Serious: Yes (Life-Threatening)
  Sender: FDA-Public Use
  Company Number: FR-ASTRAZENECA-2010SE34733

PATIENT
  Age: 81 Year
  Sex: Male

DRUGS (12)
  1. CLOPIDOGREL [Suspect]
     Dosage: PLAVIX 150 MG PER DAY
     Route: 048
     Dates: start: 20090901
  2. LERCAN [Concomitant]
  3. EQUANIL [Concomitant]
  4. NEXIUM [Suspect]
     Route: 048
     Dates: start: 20090901
  5. TEMERIT [Concomitant]
  6. PARACETAMOL [Concomitant]
  7. CLOPIDOGREL [Suspect]
     Dosage: 1 DF DAILY 75 MG ( GENERIC CLOPIDOGREL)
     Route: 048
     Dates: start: 20090901
  8. ASPIRIN [Concomitant]
  9. CORVASAL [Concomitant]
  10. TOPALGIC [Concomitant]
  11. XATRAL [Concomitant]
  12. FUNGIZONE [Concomitant]
     Dosage: 3 PER DAY

REACTIONS (1)
  - MYOCARDIAL INFARCTION [None]
